FAERS Safety Report 4838945-0 (Version None)
Quarter: 2005Q4

REPORT INFORMATION
  Report Type: 
  Country: None (occurrence: None)
  Receive Date: 20051024
  Receipt Date: 20050902
  Transmission Date: 20060501
  Serious: Yes (Life-Threatening)
  Sender: FDA-Public Use
  Company Number: 217568

PATIENT
  Age: 64 Year
  Sex: Female
  Weight: 65.3 kg

DRUGS (9)
  1. XOLAIR [Suspect]
     Indication: ASTHMA
     Dosage: 375 MG, Q2W, SUBCUTANEOUS
     Route: 058
     Dates: start: 20050803, end: 20050818
  2. BENADRYL [Concomitant]
  3. PULMICORT RESPULES [Concomitant]
  4. ALBUTEROL (ALBUTEROL, ALBUTEROL SULFATE) [Concomitant]
  5. PROTOPIC [Concomitant]
  6. TEMAZEPAM [Concomitant]
  7. ANTIHYPERTENSIVE DRUG NOS (ANTIHYPERTENSIVE NOS) [Concomitant]
  8. PREMARIN [Concomitant]
  9. QUININE SULFATE [Concomitant]

REACTIONS (2)
  - PHARYNGEAL OEDEMA [None]
  - WHEEZING [None]
